FAERS Safety Report 4850993-3 (Version None)
Quarter: 2005Q4

REPORT INFORMATION
  Report Type: 
  Country: None (occurrence: None)
  Receive Date: 20051130
  Receipt Date: 20050928
  Transmission Date: 20060501
  Serious: No
  Sender: FDA-Public Use
  Company Number: FABR-11270

PATIENT
  Age: 32 Year
  Sex: Male
  Weight: 60 kg

DRUGS (4)
  1. FABRAZYME [Suspect]
     Indication: FABRY'S DISEASE
     Dosage: 60 MG Q2WKS IV
     Route: 042
     Dates: start: 20050401
  2. HYDROCORTISONE [Concomitant]
  3. BENADRYL [Concomitant]
  4. ACETAMINOPHEN [Concomitant]

REACTIONS (3)
  - FLUSHING [None]
  - HEART RATE INCREASED [None]
  - OCULAR HYPERAEMIA [None]
